FAERS Safety Report 18068015 (Version 1)
Quarter: 2020Q3

REPORT INFORMATION
  Report Type: Spontaneous
  Country: US (occurrence: US)
  Receive Date: 20200725
  Receipt Date: 20200725
  Transmission Date: 20201103
  Serious: Yes (Disabling, Other)
  Sender: FDA-Public Use
  Company Number: US-ACCORD-192586

PATIENT
  Sex: Male

DRUGS (3)
  1. SIMVASTATIN. [Suspect]
     Active Substance: SIMVASTATIN
     Indication: HYPERLIPIDAEMIA
  2. ATORVASTATIN/ATORVASTATIN CALCIUM [Suspect]
     Active Substance: ATORVASTATIN CALCIUM
     Indication: CORONARY ARTERY DISEASE
  3. SIMVASTATIN. [Suspect]
     Active Substance: SIMVASTATIN
     Indication: CORONARY ARTERY DISEASE

REACTIONS (2)
  - Drug intolerance [Unknown]
  - Muscular weakness [Unknown]
